FAERS Safety Report 8065172-9 (Version None)
Quarter: 2012Q1

REPORT INFORMATION
  Report Type: 
  Country: None (occurrence: None)
  Receive Date: 20120117
  Receipt Date: 20120109
  Transmission Date: 20120608
  Serious: Yes (Hospitalization)
  Sender: FDA-Public Use
  Company Number: 1000025522

PATIENT
  Age: 68 Year
  Sex: Male
  Weight: 147.4 kg

DRUGS (18)
  1. PLAVIX (CLOPIDOGREL BISULFATE) (TABLETS) (CLOPIDOGREL BISULFATE) [Concomitant]
  2. SPIRIVA (TIOTROPIUM BROMIDE) (CAPSULES) (TIOTROPIUM BROMIDE) [Concomitant]
  3. LISINOPRIL (LISINOPRIL) (TABLETS) (LISINOPRIL) [Concomitant]
  4. VENTOLIN HFA (SALBUTAMOL SULFATE) (SALBUTAMOL SULFATE) [Concomitant]
  5. VITAMIN D (TABLETS) [Concomitant]
  6. ASPIRIN (ACETYLSALICYLIC ACID) (TABLETS) (ACETYLSALICYLIC ACID) [Concomitant]
  7. CYANOCOBALAMIN (CYANOCOBALAMIN) (TABLETS) (CYANOCOBALAMIN0 [Concomitant]
  8. PROVATATIN SODIUM (PROVASTATIN SODIUM) (PRAVASTATIN SODIUM) [Concomitant]
  9. ADVAIR (SERETIDE) (INHALANT) (SERETIDE) [Concomitant]
  10. VITAMIN C (VITAMIN C) (TABLETS) (VITAMIN C) [Concomitant]
  11. NIACIN (NICOTINIC ACID) (TABLETS) (NICOTINIC ACID) [Concomitant]
  12. PANTOPRAZOLE SODIUM (PANOTPRAZOLE SODIUM SESQUIHYDRATE) (TABLETS) (PAN [Concomitant]
  13. TRILIPIX (CHOLINE FENOFIBRATE) (CAPSULES) (CHOLINE FENOFIBRATE) [Concomitant]
  14. VICTOZA (LIRAGLUTIDE) (LIRAGLUTIDE) [Concomitant]
  15. MYCELEX (CLOTRIMAZOLE) (TROCHE) (CLOTRIMAZOLE) [Concomitant]
  16. DALIRESP [Suspect]
     Indication: INFECTIVE EXACERBATION OF CHRONIC OBSTRUCTIVE AIRWAYS DISEASE
     Dosage: 500 MCG (500 MCG, 1 IN 1 D), ORAL
     Route: 048
     Dates: start: 20110912, end: 20110930
  17. ALBUTEROL SULFATE (SALBUTAMOL SULFATE) (INHALANT) (SALBUTAMOL SULFATE) [Concomitant]
  18. FUROSEMIDE [Concomitant]

REACTIONS (10)
  - HEART RATE DECREASED [None]
  - MUSCULAR WEAKNESS [None]
  - NAUSEA [None]
  - VENTRICULAR TACHYCARDIA [None]
  - HYPOTENSION [None]
  - ARRHYTHMIA [None]
  - FEELING ABNORMAL [None]
  - VENTRICULAR EXTRASYSTOLES [None]
  - ATRIOVENTRICULAR BLOCK FIRST DEGREE [None]
  - DIZZINESS [None]
